FAERS Safety Report 7505889-5 (Version None)
Quarter: 2011Q2

REPORT INFORMATION
  Report Type: 
  Country: None (occurrence: None)
  Receive Date: 20110526
  Receipt Date: 20091122
  Transmission Date: 20111010
  Serious: Yes (Other)
  Sender: FDA-Public Use
  Company Number: US-BAYER-200940441NA

PATIENT
  Age: 61 Year
  Sex: Male
  Weight: 95 kg

DRUGS (14)
  1. CIPROFLOXACIN (EXTENDED RELEASE RANBAXY) [Concomitant]
     Dosage: 500 MG, TID
     Route: 048
  2. VANCOMYCIN [Concomitant]
     Dosage: 1GRAM/EVERY 12 HOURSX2
     Route: 042
     Dates: start: 20070807
  3. PERCOCET [Concomitant]
     Dosage: 1 TAB AS NEEDED/EVERY 4HRS
     Route: 048
  4. HEPARIN [Concomitant]
     Dosage: PER PROTOCOL
     Route: 042
     Dates: start: 20070807
  5. ZOFRAN [Concomitant]
     Dosage: 4MG/2ML/EVERY 6HRS
     Route: 042
     Dates: start: 20070806
  6. ACETYLSALICYLIC ACID SRT [Concomitant]
     Dosage: 81 MG, QD
     Route: 048
  7. LASIX [Concomitant]
     Dosage: 40 MG, TID
     Route: 048
     Dates: start: 20070804
  8. ALBUTEROL SULFATE AUTOHALER [Concomitant]
     Dosage: AS NEEDED,INHALATION
  9. OXYCODONE HCL [Concomitant]
     Dosage: 5-10MG/2 TAB/EVERY 3 HOURS AS NEEDED
     Route: 048
     Dates: start: 20070805
  10. APRESOLINE [Concomitant]
     Dosage: 20 MG, TID
     Route: 042
     Dates: start: 20070807
  11. ANCEF [Concomitant]
     Dosage: 1 G, UNK
     Route: 042
     Dates: start: 20070807
  12. POTASSIUM CHLORIDE [Concomitant]
  13. TRASYLOL [Suspect]
     Indication: CORONARY ARTERY BYPASS
     Dosage: 200CC LOADING DOSE THEN 50CC/HOUR HOUR
     Route: 042
     Dates: start: 20070807, end: 20070807
  14. PROTONIX [Concomitant]
     Dosage: 40 MG, TID
     Route: 048
     Dates: start: 20070806

REACTIONS (12)
  - FEAR [None]
  - INJURY [None]
  - RENAL FAILURE [None]
  - UNEVALUABLE EVENT [None]
  - PAIN [None]
  - RENAL INJURY [None]
  - ANXIETY [None]
  - ANHEDONIA [None]
  - EMOTIONAL DISTRESS [None]
  - PSYCHIATRIC SYMPTOM [None]
  - RENAL IMPAIRMENT [None]
  - STRESS [None]
